FAERS Safety Report 8982934 (Version 1)
Quarter: 2012Q4

REPORT INFORMATION
  Report Type: 
  Country: GB (occurrence: GB)
  Receive Date: 20121224
  Receipt Date: 20121224
  Transmission Date: 20130627
  Serious: Yes (Disabling)
  Sender: FDA-Public Use
  Company Number: PHHY2012GB117768

PATIENT
  Age: 81 Year
  Sex: Male
  Weight: 73 kg

DRUGS (10)
  1. RAMIPRIL [Suspect]
     Indication: HYPERTENSION
     Dosage: 1.25 mg, QD
     Route: 048
     Dates: start: 20121109
  2. PARACETAMOL [Concomitant]
  3. ASACOL MR [Concomitant]
  4. RANITIDINE [Concomitant]
  5. WARFARIN [Concomitant]
  6. EPILIM CHRONO [Concomitant]
  7. ATORVASTATIN [Concomitant]
  8. BISOPROLOL [Concomitant]
  9. CLOPIDOGREL [Concomitant]
  10. PREDNISOLONE [Concomitant]

REACTIONS (4)
  - Pain in extremity [Not Recovered/Not Resolved]
  - Fatigue [Not Recovered/Not Resolved]
  - Paraesthesia [Not Recovered/Not Resolved]
  - Myalgia [Not Recovered/Not Resolved]
